FAERS Safety Report 24282075 (Version 1)
Quarter: 2024Q3

REPORT INFORMATION
  Report Type: Report from Study
  Country: US (occurrence: US)
  Receive Date: 20240904
  Receipt Date: 20240904
  Transmission Date: 20241017
  Serious: Yes (Other)
  Sender: MYLAN
  Company Number: US-MYLANLABS-2024M1081070

PATIENT

DRUGS (5)
  1. ISOTRETINOIN [Suspect]
     Active Substance: ISOTRETINOIN
     Indication: Neuroblastoma
     Dosage: UNK, CYCLE (SCHEDULED TO RECEIVE ON DAYS 8-21 DURING CYCLES 1-6)
     Route: 065
  2. TEMOZOLOMIDE [Concomitant]
     Active Substance: TEMOZOLOMIDE
     Indication: Neuroblastoma
     Dosage: UNK, CYCLE (SCHEDULED TO RECEIVE  ON DAYS 1-5 DURING CYCLES 1-5)
     Route: 065
  3. IRINOTECAN [Concomitant]
     Active Substance: IRINOTECAN
     Indication: Neuroblastoma
     Dosage: UNK, CYCLE (SCHEDULED TO RECEIVE ON DAYS 1-5 DURING CYCLES 1-5)
     Route: 065
  4. DINUTUXIMAB [Concomitant]
     Active Substance: DINUTUXIMAB
     Indication: Neuroblastoma
     Dosage: UNK, CYCLE (SCHEDULED TO RECEIVE ON DAYS 2-5 DURING CYCLES 1-5)
     Route: 065
  5. SARGRAMOSTIM [Concomitant]
     Active Substance: SARGRAMOSTIM
     Indication: Neuroblastoma
     Dosage: UNK, CYCLE (SCHEDULED TO RECEIVE ON DAYS 6-12 DURING CYCLES 1-5)
     Route: 065

REACTIONS (3)
  - Drug ineffective for unapproved indication [Unknown]
  - Disease progression [Unknown]
  - Off label use [Unknown]
